FAERS Safety Report 8967301 (Version 1)
Quarter: 2012Q4

REPORT INFORMATION
  Report Type: 
  Country: US (occurrence: US)
  Receive Date: 20121214
  Receipt Date: 20121214
  Transmission Date: 20130627
  Serious: No
  Sender: FDA-Public Use
  Company Number: US-GLAXOSMITHKLINE-A0984461A

PATIENT
  Age: 59 Year
  Sex: Female

DRUGS (10)
  1. FLONASE [Suspect]
     Indication: MULTIPLE ALLERGIES
     Dosage: 2SPR Per day
     Route: 045
     Dates: start: 2000
  2. LEVOTHYROXINE [Concomitant]
  3. LOTENSIN [Concomitant]
  4. VERAPAMIL [Concomitant]
  5. LYRICA [Concomitant]
  6. CYMBALTA [Concomitant]
  7. TAGAMET [Concomitant]
  8. DEXILANT [Concomitant]
  9. VITAMIN D [Concomitant]
  10. ACTOS [Concomitant]

REACTIONS (1)
  - Vitamin D deficiency [Recovering/Resolving]
